FAERS Safety Report 24796875 (Version 2)
Quarter: 2025Q1

REPORT INFORMATION
  Report Type: Spontaneous
  Country: US (occurrence: US)
  Receive Date: 20250101
  Receipt Date: 20250115
  Transmission Date: 20250409
  Serious: Yes (Hospitalization, Other)
  Sender: ALEXION PHARMACEUTICALS
  Company Number: US-AstraZeneca-CH-00776036A

PATIENT
  Age: 75 Year

DRUGS (10)
  1. FARXIGA [Suspect]
     Active Substance: DAPAGLIFLOZIN PROPANEDIOL
  2. FARXIGA [Suspect]
     Active Substance: DAPAGLIFLOZIN PROPANEDIOL
     Route: 048
  3. FARXIGA [Suspect]
     Active Substance: DAPAGLIFLOZIN PROPANEDIOL
  4. FARXIGA [Suspect]
     Active Substance: DAPAGLIFLOZIN PROPANEDIOL
     Route: 048
  5. TOPROL XL [Suspect]
     Active Substance: METOPROLOL SUCCINATE
     Route: 048
  6. TOPROL XL [Suspect]
     Active Substance: METOPROLOL SUCCINATE
  7. CARVEDILOL [Suspect]
     Active Substance: CARVEDILOL
     Route: 065
  8. CARVEDILOL [Suspect]
     Active Substance: CARVEDILOL
     Route: 065
  9. LASIX [Suspect]
     Active Substance: FUROSEMIDE
     Route: 065
  10. LASIX [Suspect]
     Active Substance: FUROSEMIDE
     Route: 065

REACTIONS (24)
  - Thermal burn [Unknown]
  - Multiple allergies [Unknown]
  - Scar [Unknown]
  - Pain [Unknown]
  - Self esteem decreased [Unknown]
  - Emotional distress [Unknown]
  - Anhedonia [Unknown]
  - Rash [Unknown]
  - Biopsy stomach [Unknown]
  - Product prescribing issue [Unknown]
  - Quality of life decreased [Unknown]
  - Dermatitis [Unknown]
  - Hyperkeratosis [Unknown]
  - Epidermal necrosis [Unknown]
  - Toxic epidermal necrolysis [Unknown]
  - Fixed eruption [Unknown]
  - Stevens-Johnson syndrome [Unknown]
  - Skin lesion [Unknown]
  - Blood glucose abnormal [Unknown]
  - White blood cell disorder [Unknown]
  - Platelet disorder [Unknown]
  - Blister [Unknown]
  - Hypersensitivity [Unknown]
  - Impaired work ability [Unknown]
